FAERS Safety Report 5706176-8 (Version None)
Quarter: 2008Q2

REPORT INFORMATION
  Report Type: 
  Country: None (occurrence: None)
  Receive Date: 20080415
  Receipt Date: 20080403
  Transmission Date: 20081010
  Serious: Yes (Hospitalization)
  Sender: FDA-Public Use
  Company Number: GB-PFIZER INC-2008030022

PATIENT
  Age: 82 Year
  Sex: Female

DRUGS (4)
  1. ARTHROTEC [Suspect]
     Indication: OSTEOARTHRITIS
     Dosage: TEXT:150MG/400MCG-FREQ:TWICE DAILY
  2. INDOMETHACIN [Suspect]
  3. POTASSIUM CHLORIDE [Suspect]
     Indication: CARDIAC FAILURE CONGESTIVE
  4. FUROSEMIDE [Concomitant]
     Indication: CARDIAC FAILURE CONGESTIVE
     Dosage: DAILY DOSE:40MG-FREQ:DAILY

REACTIONS (1)
  - DUODENAL STENOSIS [None]
